FAERS Safety Report 6518021-1 (Version None)
Quarter: 2009Q4

REPORT INFORMATION
  Report Type: 
  Country: None (occurrence: None)
  Receive Date: 20091223
  Receipt Date: 20091223
  Transmission Date: 20100525
  Serious: Yes (Other)
  Sender: FDA-Public Use
  Company Number: None

PATIENT
  Age: 65 Year
  Sex: Female

DRUGS (1)
  1. NORVASC [Suspect]
     Indication: HYPERTENSION
     Dates: start: 20080401, end: 20081001

REACTIONS (4)
  - BALANCE DISORDER [None]
  - DIZZINESS [None]
  - OEDEMA PERIPHERAL [None]
  - PRODUCT SUBSTITUTION ISSUE [None]
